FAERS Safety Report 7764833-6 (Version None)
Quarter: 2011Q3

REPORT INFORMATION
  Report Type: 
  Country: None (occurrence: None)
  Receive Date: 20110921
  Receipt Date: 20110919
  Transmission Date: 20111222
  Serious: Yes (Other)
  Sender: FDA-Public Use
  Company Number: US-PFIZER INC-2011073388

PATIENT
  Sex: Male
  Weight: 73 kg

DRUGS (4)
  1. PANTOPRAZOLE [Concomitant]
     Dosage: UNK
  2. CHANTIX [Suspect]
     Dosage: 1 MG, 2X/DAY
     Route: 048
     Dates: start: 20110301, end: 20110101
  3. CHANTIX [Suspect]
     Indication: SMOKING CESSATION THERAPY
     Dosage: 0.5 MG, 1X/DAY
     Route: 048
     Dates: start: 20110310, end: 20110301
  4. CHANTIX [Suspect]
     Dosage: UNK

REACTIONS (13)
  - WITHDRAWAL SYNDROME [None]
  - CHOKING [None]
  - AGITATION [None]
  - ANGER [None]
  - PANIC ATTACK [None]
  - FEAR [None]
  - HYPERPHAGIA [None]
  - ANXIETY [None]
  - EMOTIONAL DISORDER [None]
  - NAUSEA [None]
  - FEELING ABNORMAL [None]
  - IRRITABILITY [None]
  - MENTAL DISORDER [None]
